FAERS Safety Report 7682352-2 (Version None)
Quarter: 2011Q3

REPORT INFORMATION
  Report Type: 
  Country: None (occurrence: None)
  Receive Date: 20110805
  Receipt Date: 20110725
  Transmission Date: 20111222
  Serious: Yes (Other)
  Sender: FDA-Public Use
  Company Number: 2011SP034861

PATIENT
  Age: 31 Year
  Sex: Female
  Weight: 69.6 kg

DRUGS (3)
  1. OTOMIZE [Concomitant]
  2. AMOXICILLIN [Concomitant]
  3. CERAZETTE (DESOGESTREL /00754001/) [Suspect]
     Indication: PRODUCT USED FOR UNKNOWN INDICATION
     Dates: start: 20110629, end: 20110713

REACTIONS (2)
  - DYSGEUSIA [None]
  - DRY MOUTH [None]
